FAERS Safety Report 20461554 (Version 1)
Quarter: 2022Q1

REPORT INFORMATION
  Report Type: Other
  Country: CN (occurrence: None)
  Receive Date: 20220211
  Receipt Date: 20220211
  Transmission Date: 20220423
  Serious: Yes (Other)
  Sender: FDA-Public Use
  Company Number: CN-ROCHE-3020464

PATIENT

DRUGS (6)
  1. RITUXIMAB [Suspect]
     Active Substance: RITUXIMAB
     Indication: Warm type haemolytic anaemia
     Dosage: ON THE FIRST DAY
     Route: 041
  2. DEXAMETHASONE [Suspect]
     Active Substance: DEXAMETHASONE
     Indication: Warm type haemolytic anaemia
     Dosage: ON THE 2ND AND 3RD DAYS.
     Route: 041
  3. DEXAMETHASONE [Suspect]
     Active Substance: DEXAMETHASONE
     Indication: Allergy prophylaxis
     Dosage: AT 30 MINUTES BEFORE RITUXIMAB?INJECTION
     Route: 042
  4. BORTEZOMIB [Suspect]
     Active Substance: BORTEZOMIB
     Indication: Warm type haemolytic anaemia
     Dosage: ON THE SECOND DAY
     Route: 058
  5. METHYLPREDNISOLONE [Suspect]
     Active Substance: METHYLPREDNISOLONE
     Indication: Allergy prophylaxis
     Dosage: FROM ANOTHER VENOUS PATHWAY DURING THE?RITUXIMAB INJECTION TO PREVENT ALLERGIC REACTIONS
     Route: 041
  6. PROMETHAZINE HYDROCHLORIDE [Concomitant]
     Active Substance: PROMETHAZINE HYDROCHLORIDE
     Indication: Allergy prophylaxis
     Dosage: AT 30 MINUTES BEFORE RITUXIMAB?INJECTION
     Route: 058

REACTIONS (1)
  - Angina unstable [Recovered/Resolved]
